FAERS Safety Report 23479233 (Version 3)
Quarter: 2024Q2

REPORT INFORMATION
  Report Type: Other
  Country: US (occurrence: None)
  Receive Date: 20240205
  Receipt Date: 20240516
  Transmission Date: 20240716
  Serious: Yes (Hospitalization, Other)
  Sender: FDA-Public Use
  Company Number: US-ROCHE-3497698

PATIENT
  Age: 74 Year
  Sex: Male
  Weight: 60.836 kg

DRUGS (6)
  1. OCREVUS [Suspect]
     Active Substance: OCRELIZUMAB
     Indication: Primary progressive multiple sclerosis
     Dosage: INFUSE 600 MG EVERY 6 MONTHS, DATE OF TREATMENT: 28/FEB/2023, 01/SEP/2023
     Route: 042
     Dates: start: 20180807
  2. OCREVUS [Suspect]
     Active Substance: OCRELIZUMAB
     Dosage: MOST RECENT DATE OF TREATMENT: 28/FEB/2023, 01/SEP/2023
     Route: 042
     Dates: start: 20210211
  3. ERGOCALCIFEROL [Concomitant]
     Active Substance: ERGOCALCIFEROL
     Dosage: ORAL PILL
     Dates: start: 2009
  4. VITAMIN C [Concomitant]
     Active Substance: ASCORBIC ACID
     Dosage: ORAL PILL 500 MG
     Dates: start: 2009
  5. COPAXONE [Concomitant]
     Active Substance: GLATIRAMER ACETATE
  6. REBIF [Concomitant]
     Active Substance: INTERFERON BETA-1A

REACTIONS (9)
  - COVID-19 pneumonia [Recovered/Resolved]
  - Pleural effusion [Recovered/Resolved]
  - Dyspnoea [Not Recovered/Not Resolved]
  - Asthenia [Not Recovered/Not Resolved]
  - Fatigue [Not Recovered/Not Resolved]
  - Weight decreased [Not Recovered/Not Resolved]
  - Urinary tract infection [Recovered/Resolved]
  - White blood cell count increased [Unknown]
  - Nephrolithiasis [Not Recovered/Not Resolved]

NARRATIVE: CASE EVENT DATE: 20230101
